FAERS Safety Report 18872694 (Version 1)
Quarter: 2021Q1

REPORT INFORMATION
  Report Type: Spontaneous
  Country: IT (occurrence: IT)
  Receive Date: 20210210
  Receipt Date: 20210210
  Transmission Date: 20210420
  Serious: Yes (Hospitalization)
  Sender: FDA-Public Use
  Company Number: IT-GLAXOSMITHKLINE-IT2021EME034087

PATIENT
  Sex: Female
  Weight: 60 kg

DRUGS (1)
  1. NIRAPARIB [Suspect]
     Active Substance: NIRAPARIB
     Indication: OVARIAN CANCER RECURRENT
     Dosage: 300 MG

REACTIONS (3)
  - Vomiting [Recovering/Resolving]
  - Malaise [Recovering/Resolving]
  - Blood creatinine increased [Recovering/Resolving]
